FAERS Safety Report 7818196-8 (Version None)
Quarter: 2011Q4

REPORT INFORMATION
  Report Type: 
  Country: None (occurrence: None)
  Receive Date: 20111012
  Receipt Date: 20111003
  Transmission Date: 20120403
  Serious: Yes (Life-Threatening, Hospitalization)
  Sender: FDA-Public Use
  Company Number: GB-ACCORD-010889

PATIENT
  Age: 33 Year
  Sex: Male
  Weight: 84 kg

DRUGS (4)
  1. OLANZAPINE [Suspect]
     Indication: SCHIZOPHRENIA
     Dosage: 20.00-MG-1.00 TIMES PER-1.0 DAYS/ORAL
     Route: 048
  2. TRIMETHOPRIM [Concomitant]
  3. SIMVASTATIN [Suspect]
     Indication: BLOOD CHOLESTEROL INCREASED
     Dosage: 40.00-MG-1.00 TIMES PER-1.0 DAYS/ORAL
     Route: 048
     Dates: start: 20100124, end: 20101203
  4. HYDROXYZINE [Concomitant]

REACTIONS (4)
  - BLOOD PRESSURE ABNORMAL [None]
  - AUTONOMIC NEUROPATHY [None]
  - MENTAL IMPAIRMENT [None]
  - RHABDOMYOLYSIS [None]
